FAERS Safety Report 7038286-X (Version None)
Quarter: 2010Q4

REPORT INFORMATION
  Report Type: 
  Country: None (occurrence: None)
  Receive Date: 20101011
  Receipt Date: 20091215
  Transmission Date: 20110411
  Serious: No
  Sender: FDA-Public Use
  Company Number: US-PFIZER INC-2009284477

PATIENT
  Sex: Female
  Weight: 52 kg

DRUGS (6)
  1. NEURONTIN [Suspect]
     Indication: NERVE INJURY
     Dosage: 62.5 MG/DAY
  2. NEURONTIN [Suspect]
     Indication: PAIN
  3. LOTENSIN [Suspect]
     Dosage: 10 MG, 2X/DAY
  4. PLAQUENIL [Concomitant]
  5. ESTRACE [Concomitant]
  6. ESTRACE [Concomitant]
     Dosage: FREQUENCY: EVERY 72 HOURS,

REACTIONS (8)
  - CONSTIPATION [None]
  - DIZZINESS [None]
  - FATIGUE [None]
  - HEADACHE [None]
  - INCORRECT STORAGE OF DRUG [None]
  - MALAISE [None]
  - PAIN [None]
  - SINUS DISORDER [None]
